FAERS Safety Report 16895111 (Version 1)
Quarter: 2019Q4

REPORT INFORMATION
  Report Type: Spontaneous
  Country: US (occurrence: US)
  Receive Date: 20191008
  Receipt Date: 20191008
  Transmission Date: 20200122
  Serious: Yes (Hospitalization)
  Sender: FDA-Public Use
  Company Number: US-INDIVIOR LIMITED-INDV-115236-2018

PATIENT
  Age: 25 Year
  Sex: Female

DRUGS (7)
  1. SUBUTEX [Suspect]
     Active Substance: BUPRENORPHINE HYDROCHLORIDE
     Dosage: 2 MG (2 DAYS)
     Route: 060
     Dates: start: 201810, end: 201810
  2. SUBUTEX [Suspect]
     Active Substance: BUPRENORPHINE HYDROCHLORIDE
     Dosage: 8 MG (2 DAYS)
     Route: 060
     Dates: start: 201810, end: 201810
  3. SUBUTEX [Suspect]
     Active Substance: BUPRENORPHINE HYDROCHLORIDE
     Dosage: 6 MG (2 DAYS)
     Route: 060
     Dates: start: 201810, end: 201810
  4. SUBUTEX [Suspect]
     Active Substance: BUPRENORPHINE HYDROCHLORIDE
     Dosage: 4 MG (2 DAYS)
     Route: 060
     Dates: start: 201810, end: 201810
  5. SUBUTEX [Suspect]
     Active Substance: BUPRENORPHINE HYDROCHLORIDE
     Indication: DRUG DEPENDENCE
     Dosage: MORE THAN 16MG DAILY
     Route: 060
     Dates: start: 2018, end: 2018
  6. SUBOXONE [Suspect]
     Active Substance: BUPRENORPHINE HYDROCHLORIDE\NALOXONE HYDROCHLORIDE
     Indication: DRUG DEPENDENCE
     Dosage: 16MG, PER DAY (THREE MONTH)
     Route: 060
     Dates: start: 2018, end: 2018
  7. SUBOXONE [Suspect]
     Active Substance: BUPRENORPHINE HYDROCHLORIDE\NALOXONE HYDROCHLORIDE
     Dosage: 16MG OR MORE, PER DAY (ONE MONTH)
     Route: 060
     Dates: start: 2018, end: 2018

REACTIONS (4)
  - Substance abuse [Recovered/Resolved]
  - Drug withdrawal syndrome [Not Recovered/Not Resolved]
  - Drug detoxification [Recovered/Resolved]
  - Drug dependence [Recovered/Resolved]

NARRATIVE: CASE EVENT DATE: 2018
